FAERS Safety Report 7692227-0 (Version None)
Quarter: 2011Q3

REPORT INFORMATION
  Report Type: 
  Country: None (occurrence: None)
  Receive Date: 20110818
  Receipt Date: 20110810
  Transmission Date: 20111222
  Serious: Yes (Hospitalization)
  Sender: FDA-Public Use
  Company Number: US-US-EMD SERONO, INC.-7076495

PATIENT
  Sex: Female

DRUGS (1)
  1. REBIF [Suspect]
     Indication: PRODUCT USED FOR UNKNOWN INDICATION
     Route: 058
     Dates: start: 20110614

REACTIONS (5)
  - INFLUENZA LIKE ILLNESS [None]
  - WOUND INFECTION [None]
  - INJECTION SITE PAIN [None]
  - ARTHROPOD BITE [None]
  - FUNCTIONAL GASTROINTESTINAL DISORDER [None]
